FAERS Safety Report 8643436 (Version 4)
Quarter: 2013Q1

REPORT INFORMATION
  Report Type: Spontaneous
  Country: US (occurrence: US)
  Receive Date: 20120629
  Receipt Date: 20130325
  Transmission Date: 20140127
  Serious: Yes (Hospitalization)
  Sender: FDA-Public Use
  Company Number: US-B.I. PHARMACEUTICALS,INC./RIDGEFIELD-2012-BP-14368BP

PATIENT
  Age: 74 Year
  Sex: Male
  Weight: 110.22 kg

DRUGS (23)
  1. PRADAXA [Suspect]
     Indication: ATRIAL FIBRILLATION
     Dosage: 300 MG
     Route: 048
     Dates: start: 20110320, end: 20110722
  2. IRON [Concomitant]
     Indication: SUPPLEMENTATION THERAPY
     Dosage: 15 MG
  3. VITAMIN D3 [Concomitant]
     Indication: SUPPLEMENTATION THERAPY
     Dosage: 2000 U
  4. KCL [Concomitant]
     Indication: SUPPLEMENTATION THERAPY
     Dosage: 40 MEQ
  5. KCL [Concomitant]
     Indication: DIURETIC THERAPY
  6. ZOCOR [Concomitant]
     Indication: BLOOD CHOLESTEROL
     Dosage: 40 MG
     Dates: start: 2002
  7. VITAMINE E [Concomitant]
     Indication: SUPPLEMENTATION THERAPY
  8. NOVOLOG [Concomitant]
     Indication: DIABETES MELLITUS
  9. PRILOSEC [Concomitant]
     Indication: GASTRIC DISORDER
     Dosage: 20 MG
  10. SPIRIVA [Concomitant]
     Indication: DYSPNOEA
     Dosage: 18 MCG
     Route: 055
     Dates: start: 2008
  11. ADVAIR [Concomitant]
     Indication: DYSPNOEA
     Route: 055
     Dates: start: 2007
  12. DIGOXIN [Concomitant]
     Indication: HEART RATE
     Dosage: 0.125 MG
     Dates: start: 2011, end: 2012
  13. LASIX [Concomitant]
     Indication: DIURETIC THERAPY
     Dosage: 40 MG
     Dates: start: 2008, end: 2012
  14. LEVEMIR [Concomitant]
     Indication: DIABETES MELLITUS
     Dosage: 20 U
     Route: 058
     Dates: start: 2006
  15. MAGNESIUM OXIDE [Concomitant]
     Indication: SUPPLEMENTATION THERAPY
     Dosage: 400 MG
  16. MIDODRENE [Concomitant]
     Dosage: 7.5 MG
     Dates: start: 2011, end: 2012
  17. FLUCORTISONE [Concomitant]
  18. LUTEIN [Concomitant]
     Indication: SUPPLEMENTATION THERAPY
  19. LAC LOTION [Concomitant]
     Indication: SKIN DISORDER
  20. AMBIEN [Concomitant]
     Indication: SLEEP DISORDER
     Dosage: 10 MG
     Dates: start: 2005
  21. METOPROLOL [Concomitant]
     Indication: BLOOD PRESSURE
     Dosage: 100 MG
  22. METOPROLOL [Concomitant]
     Indication: HEART RATE
  23. VIT E [Concomitant]
     Indication: SUPPLEMENTATION THERAPY

REACTIONS (4)
  - Gastrointestinal haemorrhage [Recovered/Resolved]
  - Anaemia [Unknown]
  - Epistaxis [Unknown]
  - Rectal haemorrhage [Unknown]
